FAERS Safety Report 15326443 (Version 1)
Quarter: 2018Q3

REPORT INFORMATION
  Report Type: Spontaneous
  Country: US (occurrence: US)
  Receive Date: 20180823
  Receipt Date: 20180823
  Transmission Date: 20181010
  Serious: Yes (Disabling)
  Sender: FDA-Public Use
  Company Number: None

PATIENT
  Age: 60 Year
  Sex: Female
  Weight: 61.23 kg

DRUGS (1)
  1. GADAVIST [Suspect]
     Active Substance: GADOBUTROL
     Indication: IMAGING PROCEDURE
     Route: 042
     Dates: start: 20180525

REACTIONS (10)
  - Arthralgia [None]
  - Headache [None]
  - Muscular weakness [None]
  - Neuropathy peripheral [None]
  - Tremor [None]
  - Back pain [None]
  - Feeling abnormal [None]
  - Myalgia [None]
  - Blood heavy metal increased [None]
  - Bone pain [None]

NARRATIVE: CASE EVENT DATE: 20180525
